FAERS Safety Report 21329890 (Version 4)
Quarter: 2022Q4

REPORT INFORMATION
  Report Type: Spontaneous
  Country: US (occurrence: US)
  Receive Date: 20220913
  Receipt Date: 20221208
  Transmission Date: 20230113
  Serious: Yes (Hospitalization)
  Sender: FDA-Public Use
  Company Number: US-NOVARTISTESTPH-NVSC2022US206824

PATIENT
  Age: 98 Year
  Sex: Male

DRUGS (2)
  1. PROMACTA [Suspect]
     Active Substance: ELTROMBOPAG OLAMINE
     Indication: Myelodysplastic syndrome
     Dosage: 50 MG, QD
     Route: 048
     Dates: start: 20220721
  2. PROMACTA [Suspect]
     Active Substance: ELTROMBOPAG OLAMINE
     Dosage: 50 MG, QD
     Route: 048
     Dates: start: 20221107

REACTIONS (5)
  - Thrombosis [Unknown]
  - Cellulitis [Unknown]
  - Oedema peripheral [Unknown]
  - Swelling [Unknown]
  - Off label use [Unknown]

NARRATIVE: CASE EVENT DATE: 20220721
